FAERS Safety Report 15553300 (Version 1)
Quarter: 2018Q4

REPORT INFORMATION
  Report Type: Spontaneous
  Country: KR (occurrence: KR)
  Receive Date: 20181026
  Receipt Date: 20181026
  Transmission Date: 20190205
  Serious: Yes (Other)
  Sender: FDA-Public Use
  Company Number: KR-SUN PHARMACEUTICAL INDUSTRIES LTD-2018RR-189338

PATIENT
  Age: 35 Year
  Sex: Male

DRUGS (3)
  1. HEPARIN [Suspect]
     Active Substance: HEPARIN SODIUM
     Indication: CEREBRAL ANEURYSM PERFORATION
     Route: 065
  2. ASPIRIN. [Suspect]
     Active Substance: ASPIRIN
     Indication: CEREBRAL ANEURYSM PERFORATION
     Dosage: 100 MG, DAILY
     Route: 048
  3. FRAXIPARIN [Suspect]
     Active Substance: NADROPARIN CALCIUM
     Indication: CEREBRAL ANEURYSM PERFORATION
     Route: 065

REACTIONS (1)
  - Aneurysm ruptured [Unknown]
